FAERS Safety Report 5945780-9 (Version None)
Quarter: 2008Q4

REPORT INFORMATION
  Report Type: 
  Country: None (occurrence: None)
  Receive Date: 20081106
  Receipt Date: 20081023
  Transmission Date: 20090506
  Serious: Yes (Hospitalization)
  Sender: FDA-Public Use
  Company Number: 231060K08USA

PATIENT
  Age: 48 Year
  Sex: Male

DRUGS (5)
  1. REBIF [Suspect]
     Indication: MULTIPLE SCLEROSIS
     Dosage: SUBCUTANEOUS
     Route: 058
     Dates: start: 20071115, end: 20080901
  2. TEGRETOL [Suspect]
  3. ZANAFLEX [Concomitant]
  4. CYMBALTA [Concomitant]
  5. LYRICA [Concomitant]

REACTIONS (2)
  - DYSPHAGIA [None]
  - STEVENS-JOHNSON SYNDROME [None]
